FAERS Safety Report 9045972 (Version 1)
Quarter: 2013Q1

REPORT INFORMATION
  Report Type: Spontaneous
  Country: US (occurrence: US)
  Receive Date: 20130201
  Receipt Date: 20130201
  Transmission Date: 20140127
  Serious: No
  Sender: FDA-Public Use
  Company Number: US-ABBOTT-12P-163-1019500-00

PATIENT
  Age: 62 Year
  Sex: Female

DRUGS (6)
  1. HUMIRA [Suspect]
     Indication: PSORIASIS
  2. HUMIRA [Suspect]
     Dates: start: 20121203
  3. SYNTHROID [Concomitant]
     Indication: PRODUCT USED FOR UNKNOWN INDICATION
  4. MULTIVITAMIN [Concomitant]
     Indication: PRODUCT USED FOR UNKNOWN INDICATION
  5. CALCIUM [Concomitant]
     Indication: PRODUCT USED FOR UNKNOWN INDICATION
  6. VITAMIN D [Concomitant]
     Indication: PRODUCT USED FOR UNKNOWN INDICATION

REACTIONS (1)
  - Psoriasis [Not Recovered/Not Resolved]
